FAERS Safety Report 13766995 (Version 1)
Quarter: 2017Q3

REPORT INFORMATION
  Report Type: Spontaneous
  Country: FR (occurrence: FR)
  Receive Date: 20170719
  Receipt Date: 20170719
  Transmission Date: 20171127
  Serious: Yes (Hospitalization)
  Sender: FDA-Public Use
  Company Number: FR-TEVA-786948ROM

PATIENT
  Age: 83 Year
  Sex: Female

DRUGS (11)
  1. TRAMADOL BASE [Suspect]
     Active Substance: TRAMADOL
     Indication: PAIN
     Route: 048
     Dates: start: 20170608, end: 20170619
  2. SOTALOL. [Concomitant]
     Active Substance: SOTALOL
     Dosage: 160 MILLIGRAM DAILY; USUAL TREATMENT, TAKEN IN THE MORNING AND IN THE EVENING
  3. EUPRESSYL [Concomitant]
     Active Substance: URAPIDIL
     Dosage: 120 MILLIGRAM DAILY; USUAL TREATMENT, TAKEN IN THE MORNING AND IN THE EVENING
  4. PARACETAMOL [Concomitant]
     Active Substance: ACETAMINOPHEN
     Dosage: USUAL TREATMENT
  5. LOPERAMIDE [Concomitant]
     Active Substance: LOPERAMIDE
     Dosage: USUAL TREATMENT
  6. MIRTAZAPINE BLUEFISH 15 MG [Suspect]
     Active Substance: MIRTAZAPINE
     Indication: DEPRESSION
     Dosage: 15 MILLIGRAM DAILY; IN THE EVENING
     Route: 048
     Dates: start: 20170615, end: 20170619
  7. CALCIDOSE VITAMINE D3 [Concomitant]
     Active Substance: CALCIUM\CHOLECALCIFEROL
     Dosage: 2 DOSAGE FORMS DAILY; USUAL TREATMENT, TAKEN AT MIDDAY
  8. ACTONEL [Suspect]
     Active Substance: RISEDRONATE SODIUM
     Indication: PRODUCT USED FOR UNKNOWN INDICATION
     Route: 048
     Dates: start: 20170616, end: 20170619
  9. FENOFIBRATE. [Concomitant]
     Active Substance: FENOFIBRATE
     Dosage: 160 MILLIGRAM DAILY; USUAL TREATMENT, TAKEN IN THE MORNING
  10. SERESTA [Concomitant]
     Active Substance: OXAZEPAM
     Dosage: 30 MILLIGRAM DAILY; USUAL TREATMENT, TAKEN IN THE MORNING, AT MIDDAY AND IN THE EVENING
  11. PRADAXA [Concomitant]
     Active Substance: DABIGATRAN ETEXILATE MESYLATE
     Dosage: 300 MILLIGRAM DAILY; USUAL TREATMENT, TAKEN IN THE MORNING AND IN THE EVENING

REACTIONS (5)
  - Blood alkaline phosphatase increased [Not Recovered/Not Resolved]
  - Hepatocellular injury [Not Recovered/Not Resolved]
  - Gamma-glutamyltransferase increased [Not Recovered/Not Resolved]
  - Cholestasis [Not Recovered/Not Resolved]
  - Transaminases increased [Not Recovered/Not Resolved]

NARRATIVE: CASE EVENT DATE: 20170618
